FAERS Safety Report 5063607-7 (Version None)
Quarter: 2006Q3

REPORT INFORMATION
  Report Type: 
  Country: None (occurrence: None)
  Receive Date: 20060724
  Receipt Date: 20060120
  Transmission Date: 20061208
  Serious: Yes (Other)
  Sender: FDA-Public Use
  Company Number: 805#1#2006-00002

PATIENT
  Age: 7 Day
  Sex: Female

DRUGS (6)
  1. ALPROSTADIL [Suspect]
     Indication: HEART DISEASE CONGENITAL
     Dosage: SEE IMAGE
     Dates: start: 20051125, end: 20051125
  2. ALPROSTADIL [Suspect]
     Indication: HEART DISEASE CONGENITAL
     Dosage: SEE IMAGE
     Dates: start: 20051125, end: 20051127
  3. ALPROSTADIL [Suspect]
     Indication: HEART DISEASE CONGENITAL
     Dosage: SEE IMAGE
     Dates: start: 20051127, end: 20051203
  4. ALPROSTADIL [Suspect]
     Indication: HEART DISEASE CONGENITAL
     Dosage: SEE IMAGE
     Dates: start: 20051203, end: 20051209
  5. ALPROSTADIL [Suspect]
     Indication: HEART DISEASE CONGENITAL
     Dosage: SEE IMAGE
     Dates: start: 20051209, end: 20051212
  6. ADENOSINE 5 -TRIPHOSPHATE DISODIUM (ADENOSINE TRIPHOSPHATE, DISODIUM S [Concomitant]

REACTIONS (6)
  - HEART RATE INCREASED [None]
  - NEONATAL DISORDER [None]
  - NEONATAL RESPIRATORY DEPRESSION [None]
  - PYREXIA [None]
  - RESPIRATORY RATE INCREASED [None]
  - SUPRAVENTRICULAR TACHYCARDIA [None]
